FAERS Safety Report 9748425 (Version 4)
Quarter: 2013Q4

REPORT INFORMATION
  Report Type: Report from Study
  Country: FR (occurrence: FR)
  Receive Date: 20131212
  Receipt Date: 20131230
  Transmission Date: 20140711
  Serious: Yes (Death, Hospitalization, Disabling, Other)
  Sender: FDA-Public Use
  Company Number: FR-MILLENNIUM PHARMACEUTICALS, INC.-2013JNJ001037

PATIENT
  Sex: 0

DRUGS (10)
  1. VELCADE [Suspect]
     Indication: PLASMA CELL MYELOMA
     Dosage: UNK
     Route: 065
     Dates: start: 20120905, end: 20130117
  2. DEXAMETHASONE [Concomitant]
     Indication: PLASMA CELL MYELOMA
     Dosage: UNK
     Dates: start: 20120905, end: 20130528
  3. POMALIDOMIDE [Concomitant]
     Indication: PLASMA CELL MYELOMA
     Dosage: UNK
     Dates: start: 20130125, end: 20130528
  4. LANTUS [Concomitant]
  5. TRIATEC                            /00116401/ [Concomitant]
  6. KARDEGIC [Concomitant]
     Dosage: 75 MG, UNK
     Dates: start: 201301, end: 201305
  7. VALACICLOVIR [Concomitant]
  8. NEORECORMON [Concomitant]
     Dosage: UNK
     Dates: start: 201301
  9. AUGMENTIN                          /00756801/ [Concomitant]
     Dosage: UNK
     Dates: start: 20130128, end: 201302
  10. CIFLOX                             /00697201/ [Concomitant]
     Dosage: UNK
     Dates: start: 20130128, end: 201302

REACTIONS (3)
  - Death [Fatal]
  - Bronchopulmonary aspergillosis [Recovering/Resolving]
  - General physical health deterioration [Recovered/Resolved with Sequelae]
